FAERS Safety Report 5832945-X (Version None)
Quarter: 2008Q3

REPORT INFORMATION
  Report Type: 
  Country: None (occurrence: None)
  Receive Date: 20080730
  Receipt Date: 20080718
  Transmission Date: 20090109
  Serious: Yes (Hospitalization, Other)
  Sender: FDA-Public Use
  Company Number: 2008US001414

PATIENT
  Age: 25 Year
  Sex: Male
  Weight: 51 kg

DRUGS (23)
  1. AMBISOME [Suspect]
     Indication: BRONCHOPULMONARY ASPERGILLOSIS
     Dosage: 250 MG, UID/QD, IV NOS
     Route: 042
     Dates: start: 20070921, end: 20071011
  2. AMBISOME [Suspect]
     Indication: BRONCHOPULMONARY ASPERGILLOSIS
     Dosage: 250 MG, UID/QD, IV NOS
     Route: 042
     Dates: start: 20071027, end: 20071028
  3. AMBISOME [Suspect]
     Indication: BRONCHOPULMONARY ASPERGILLOSIS
     Dosage: 250 MG, UID/QD, IV NOS
     Route: 042
     Dates: start: 20071101, end: 20071226
  4. FUNGIZONE [Suspect]
     Indication: BRONCHOPULMONARY ASPERGILLOSIS
     Dates: start: 20071012, end: 20071026
  5. FUNGIZONE [Suspect]
     Indication: BRONCHOPULMONARY ASPERGILLOSIS
     Dates: start: 20071029, end: 20071030
  6. CARBENIN(BETAMIPRON, PAN IPENEM) [Suspect]
     Indication: DRUG USE FOR UNKNOWN INDICATION
     Dosage: 2 G, UID/QD, DR
     Dates: start: 20070927, end: 20071024
  7. CYTARABINE [Suspect]
     Indication: DRUG USE FOR UNKNOWN INDICATION
     Dosage: 3360 MG, UID/QD
     Dates: start: 20071129, end: 20071201
  8. VEPESID [Suspect]
     Indication: DRUG USE FOR UNKNOWN INDICATION
     Dosage: 170 MG, UID/QD, DR,
     Dates: start: 20071129, end: 20071201
  9. METHOTREXATE [Suspect]
     Indication: DRUG USE FOR UNKNOWN INDICATION
     Dosage: 15 MG, UID/QD
     Dates: start: 20071129, end: 20071129
  10. DECADRON [Suspect]
     Indication: DRUG USE FOR UNKNOWN INDICATION
     Dosage: 4 MG, UID/QD; 40 MG,UID/QD
     Dates: start: 20071129, end: 20071129
  11. DECADRON [Suspect]
     Indication: DRUG USE FOR UNKNOWN INDICATION
     Dosage: 4 MG, UID/QD; 40 MG,UID/QD
     Dates: start: 20071129, end: 20071201
  12. CLINDAMYCIN HCL [Suspect]
     Indication: DRUG USE FOR UNKNOWN INDICATION
     Dosage: 1200 MG, UID/QD
     Dates: start: 20071208, end: 20071216
  13. HABEKACIN(ARBEKACIN) [Suspect]
     Indication: DRUG USE FOR UNKNOWN INDICATION
     Dosage: 200 MG, UID/QD
     Dates: start: 20071209, end: 20071214
  14. ITRACONAZOLE [Concomitant]
  15. VFEND [Concomitant]
  16. HEPARIN [Concomitant]
  17. LANSOPRAZOLE [Concomitant]
  18. LEVOFLOXACIN [Concomitant]
  19. PLATELETS [Concomitant]
  20. FUNGUARD (MICAFUNGIN SODIUM) [Concomitant]
  21. VANCOMYCIN HYDROCHLORIDE [Concomitant]
  22. RED BLOOD CELLS [Concomitant]
  23. FLAGYL [Concomitant]

REACTIONS (13)
  - ANAEMIA [None]
  - ASPARTATE AMINOTRANSFERASE INCREASED [None]
  - BLOOD UREA DECREASED [None]
  - DEEP VEIN THROMBOSIS [None]
  - DRUG INEFFECTIVE [None]
  - HICCUPS [None]
  - HYPOKALAEMIA [None]
  - NEUTROPENIA [None]
  - PNEUMONIA [None]
  - PNEUMONIA BACTERIAL [None]
  - PSEUDOMEMBRANOUS COLITIS [None]
  - RENAL IMPAIRMENT [None]
  - THROMBOCYTOPENIA [None]
